FAERS Safety Report 23204725 (Version 1)
Quarter: 2023Q4

REPORT INFORMATION
  Report Type: Spontaneous
  Country: US (occurrence: US)
  Receive Date: 20231120
  Receipt Date: 20231120
  Transmission Date: 20240109
  Serious: No
  Sender: FDA-Public Use
  Company Number: US-TAKEDA-2023TUS110597

PATIENT
  Age: 34 Year
  Sex: Male

DRUGS (2)
  1. ADDERALL XR [Suspect]
     Active Substance: AMPHETAMINE ASPARTATE\AMPHETAMINE SULFATE\DEXTROAMPHETAMINE SACCHARATE\DEXTROAMPHETAMINE SULFATE
     Indication: Product used for unknown indication
     Dosage: 20 MILLIGRAM, TID
     Route: 065
  2. XELSTRYM [Suspect]
     Active Substance: DEXTROAMPHETAMINE
     Indication: Product used for unknown indication
     Dosage: UNK
     Route: 062

REACTIONS (1)
  - Therapeutic product effect delayed [Unknown]
